FAERS Safety Report 21120977 (Version 1)
Quarter: 2022Q3

REPORT INFORMATION
  Report Type: Spontaneous
  Country: US (occurrence: US)
  Receive Date: 20220722
  Receipt Date: 20220722
  Transmission Date: 20221027
  Serious: No
  Sender: FDA-Public Use
  Company Number: US-PFIZER INC-202200985914

PATIENT
  Age: 84 Year
  Sex: Male
  Weight: 58.06 kg

DRUGS (8)
  1. PAXLOVID [Suspect]
     Active Substance: NIRMATRELVIR\RITONAVIR
     Indication: COVID-19 treatment
     Dosage: 3 DF, 2X/DAY (2 NIRMATRELVIR AND 1 RITONAVIR EVERY 12 HOURS MORNING AND NIGHT)
     Dates: start: 20220715
  2. METOPROLOL [Concomitant]
     Active Substance: METOPROLOL
     Indication: Cardiac disorder
     Dosage: 50 MG, 1X/DAY
  3. MELOXICAM [Concomitant]
     Active Substance: MELOXICAM
     Indication: Arthritis
     Dosage: 15 MG, 1X/DAY
  4. MELOXICAM [Concomitant]
     Active Substance: MELOXICAM
     Indication: Pain
  5. FINASTERIDE [Concomitant]
     Active Substance: FINASTERIDE
     Indication: Prostate cancer
     Dosage: 5 MG
  6. CITALOPRAM [Concomitant]
     Active Substance: CITALOPRAM HYDROBROMIDE
     Indication: Cardiac disorder
     Dosage: 40 MG
  7. AMLODIPINE [Concomitant]
     Active Substance: AMLODIPINE BESYLATE
     Indication: Urine analysis abnormal
     Dosage: 5 MG
  8. VITAMIN D3 [Concomitant]
     Active Substance: CHOLECALCIFEROL
     Dosage: 1 DF, 1X/DAY (1 A NIGHT; 1000)

REACTIONS (2)
  - Cough [Unknown]
  - Diarrhoea [Recovering/Resolving]

NARRATIVE: CASE EVENT DATE: 20220701
